FAERS Safety Report 5312596-6 (Version None)
Quarter: 2007Q2

REPORT INFORMATION
  Report Type: 
  Country: None (occurrence: None)
  Receive Date: 20070430
  Receipt Date: 20070205
  Transmission Date: 20071010
  Serious: No
  Sender: FDA-Public Use
  Company Number: 2007UW02404

PATIENT
  Age: 53 Year
  Sex: Female
  Weight: 68 kg

DRUGS (10)
  1. NEXIUM [Suspect]
     Indication: GASTRIC DISORDER
     Route: 048
     Dates: start: 20060801
  2. SYNTHROID [Concomitant]
  3. ASCORBIC ACID [Concomitant]
  4. MULTIPLE SUPPLEMENTS [Concomitant]
  5. ANTIOXIDANTS [Concomitant]
  6. CHINESE HERBS [Concomitant]
  7. ELAVIL [Concomitant]
  8. CHEMOTHERAPY [Concomitant]
     Dates: end: 20070115
  9. AVASTIN [Concomitant]
     Dates: end: 20070115
  10. TAXIL [Concomitant]
     Dates: end: 20070115

REACTIONS (3)
  - CARBOHYDRATE ANTIGEN 27.29 INCREASED [None]
  - CARCINOEMBRYONIC ANTIGEN INCREASED [None]
  - LIVER FUNCTION TEST [None]
